FAERS Safety Report 11294567 (Version 1)
Quarter: 2015Q2

REPORT INFORMATION
  Report Type: Spontaneous
  Country: US (occurrence: None)
  Receive Date: 20150623
  Receipt Date: 20150623
  Transmission Date: 20150821
  Serious: Yes (Other)
  Sender: FDA-Public Use
  Company Number: RB-66012-2014

PATIENT
  Age: 68 Year
  Sex: Female

DRUGS (1)
  1. GUAIFENESIN W/DEXTROMETHORPHAN 1200 MG (RECKITT BENCKISER) [Suspect]
     Active Substance: DEXTROMETHORPHAN\GUAIFENESIN
     Indication: PRODUCT USED FOR UNKNOWN INDICATION
     Dosage: (1200 MG QD, TOOK 1 TABLET ON 10-MAY-2014 ORAL)
     Route: 048
     Dates: start: 20140510

REACTIONS (2)
  - Malaise [None]
  - Blood pressure increased [None]

NARRATIVE: CASE EVENT DATE: 20140510
